FAERS Safety Report 5741552-9 (Version None)
Quarter: 2008Q2

REPORT INFORMATION
  Report Type: 
  Country: None (occurrence: None)
  Receive Date: 20080519
  Receipt Date: 20080402
  Transmission Date: 20081010
  Serious: Yes (Hospitalization)
  Sender: FDA-Public Use
  Company Number: JP-BAYER-200810362BYL

PATIENT
  Age: 40 Year
  Sex: Male

DRUGS (2)
  1. BUFFERIN [Suspect]
     Indication: POLYCYTHAEMIA VERA
     Dosage: TOTAL DAILY DOSE: 81 MG
     Route: 048
     Dates: start: 20070519
  2. KELNAC [Concomitant]
     Indication: DRUG USE FOR UNKNOWN INDICATION
     Dosage: TOTAL DAILY DOSE: 80 MG
     Route: 048

REACTIONS (3)
  - COMPARTMENT SYNDROME [None]
  - MUSCLE HAEMORRHAGE [None]
  - MUSCLE NECROSIS [None]
